FAERS Safety Report 7525545-7 (Version None)
Quarter: 2011Q2

REPORT INFORMATION
  Report Type: 
  Country: None (occurrence: None)
  Receive Date: 20110606
  Receipt Date: 20110601
  Transmission Date: 20111010
  Serious: Yes (Disabling)
  Sender: FDA-Public Use
  Company Number: BE-ABBOTT-11P-013-0729568-00

PATIENT
  Age: 57 Year
  Sex: Male

DRUGS (1)
  1. LEUPROLIDE ACETATE [Suspect]
     Indication: PROSTATE CANCER
     Dates: start: 20101208, end: 20110415

REACTIONS (3)
  - METASTATIC PAIN [None]
  - MOBILITY DECREASED [None]
  - METASTASIS [None]
